FAERS Safety Report 25281856 (Version 1)
Quarter: 2025Q2

REPORT INFORMATION
  Report Type: Report from Study
  Country: RO (occurrence: RO)
  Receive Date: 20250508
  Receipt Date: 20250508
  Transmission Date: 20250716
  Serious: Yes (Hospitalization)
  Sender: ABBVIE
  Company Number: RO-AMGEN-ROUSL2024092701

PATIENT
  Age: 67 Year
  Sex: Male

DRUGS (2)
  1. BOTOX [Suspect]
     Active Substance: ONABOTULINUMTOXINA
     Indication: Product used for unknown indication
     Route: 065
  2. VECTIBIX [Suspect]
     Active Substance: PANITUMUMAB
     Indication: Product used for unknown indication
     Route: 065

REACTIONS (7)
  - Colon operation [Unknown]
  - Lip swelling [Unknown]
  - Erythema [Unknown]
  - Contusion [Unknown]
  - Rash [Unknown]
  - Skin lesion [Unknown]
  - Blister [Unknown]

NARRATIVE: CASE EVENT DATE: 20250401
